FAERS Safety Report 5343355-6 (Version None)
Quarter: 2007Q2

REPORT INFORMATION
  Report Type: 
  Country: None (occurrence: None)
  Receive Date: 20070501
  Receipt Date: 20070115
  Transmission Date: 20071010
  Serious: No
  Sender: FDA-Public Use
  Company Number: 200710349US

PATIENT
  Age: 38 Year
  Sex: Female

DRUGS (1)
  1. KETEK [Suspect]
     Indication: SINUSITIS
     Dosage: 400 MG BID
     Dates: start: 20070112, end: 20070113

REACTIONS (2)
  - DIZZINESS [None]
  - VISION BLURRED [None]
